FAERS Safety Report 18953525 (Version 1)
Quarter: 2021Q1

REPORT INFORMATION
  Report Type: Spontaneous
  Country: KR (occurrence: KR)
  Receive Date: 20210301
  Receipt Date: 20210301
  Transmission Date: 20210420
  Serious: Yes (Other)
  Sender: FDA-Public Use
  Company Number: KR-BAYER-2021-079504

PATIENT
  Age: 36 Year
  Sex: Male

DRUGS (2)
  1. ATEZOLIZUMAB;BEVACIZUMAB [Concomitant]
     Indication: HEPATOCELLULAR CARCINOMA
     Dosage: UNK
     Dates: start: 202007, end: 202009
  2. NEXAVAR [Suspect]
     Active Substance: SORAFENIB
     Indication: HEPATOCELLULAR CARCINOMA
     Dosage: UNK
     Dates: start: 202009, end: 202011

REACTIONS (1)
  - Hepatocellular carcinoma [Not Recovered/Not Resolved]

NARRATIVE: CASE EVENT DATE: 202011
